FAERS Safety Report 12447098 (Version 1)
Quarter: 2016Q2

REPORT INFORMATION
  Report Type: Other
  Country: US (occurrence: US)
  Receive Date: 20160608
  Receipt Date: 20160608
  Transmission Date: 20160815
  Serious: Yes (Disabling, Other)
  Sender: FDA-Public Use
  Company Number: US-ACORDA-ACO_124690_2016

PATIENT
  Age: 46 Year
  Sex: Male

DRUGS (1)
  1. AMPYRA [Suspect]
     Active Substance: DALFAMPRIDINE
     Indication: PRODUCT USED FOR UNKNOWN INDICATION
     Route: 065

REACTIONS (11)
  - Cerebral atrophy [Unknown]
  - Ataxia [Not Recovered/Not Resolved]
  - Central nervous system lesion [Unknown]
  - Spinal cord disorder [Unknown]
  - Disease progression [Unknown]
  - Disability [Unknown]
  - Joint injury [Unknown]
  - Muscular weakness [None]
  - Optic neuritis [Unknown]
  - Adverse event [Unknown]
  - Deep vein thrombosis [Unknown]
